FAERS Safety Report 20401695 (Version 2)
Quarter: 2022Q1

REPORT INFORMATION
  Report Type: Spontaneous
  Country: US (occurrence: US)
  Receive Date: 20220131
  Receipt Date: 20220201
  Transmission Date: 20220423
  Serious: No
  Sender: FDA-Public Use
  Company Number: US-ABBVIE-21K-163-4094221-00

PATIENT
  Age: 79 Year
  Sex: Female

DRUGS (2)
  1. HUMIRA [Suspect]
     Active Substance: ADALIMUMAB
     Indication: Rheumatoid arthritis
     Route: 058
     Dates: start: 2012
  2. HUMIRA [Suspect]
     Active Substance: ADALIMUMAB
     Route: 058
     Dates: start: 20210708

REACTIONS (7)
  - Skin laceration [Unknown]
  - Calcinosis [Unknown]
  - Walking aid user [Unknown]
  - Joint stiffness [Unknown]
  - Wound complication [Unknown]
  - Impaired healing [Unknown]
  - Arthralgia [Unknown]

NARRATIVE: CASE EVENT DATE: 20210714
